FAERS Safety Report 6062717-5 (Version None)
Quarter: 2009Q1

REPORT INFORMATION
  Report Type: 
  Country: None (occurrence: None)
  Receive Date: 20090203
  Receipt Date: 20090127
  Transmission Date: 20090719
  Serious: Yes (Other)
  Sender: FDA-Public Use
  Company Number: US-JNJCH-2009002505

PATIENT
  Age: 59 Year
  Sex: Female
  Weight: 124.7 kg

DRUGS (4)
  1. BENADRYL [Suspect]
     Indication: MYCOTIC ALLERGY
     Dosage: TEXT:1/4 TEASPOON ONCE DAILY
     Route: 061
     Dates: start: 20090122, end: 20090127
  2. ATENOLOL [Concomitant]
     Indication: HYPERTENSION
     Dosage: TEXT:1/50MG, UNSPECIFIED
     Route: 048
  3. LUNESTA [Concomitant]
     Indication: INSOMNIA
     Dosage: TEXT:1/3MG, UNSPECIFIED
     Route: 048
  4. VITAMIN D [Concomitant]
     Indication: VITAMIN D DEFICIENCY
     Dosage: TEXT:1/5000UNITS, UNSPECIFIED
     Route: 065

REACTIONS (3)
  - DRUG ADMINISTRATION ERROR [None]
  - DYSPNOEA [None]
  - THROAT TIGHTNESS [None]
